FAERS Safety Report 25457030 (Version 2)
Quarter: 2025Q3

REPORT INFORMATION
  Report Type: Spontaneous
  Country: US (occurrence: US)
  Receive Date: 20250619
  Receipt Date: 20250803
  Transmission Date: 20251020
  Serious: No
  Sender: SANOFI AVENTIS
  Company Number: US-SA-2025SA173665

PATIENT
  Age: 20 Year
  Sex: Male

DRUGS (1)
  1. FABRAZYME [Suspect]
     Active Substance: AGALSIDASE BETA
     Route: 065

REACTIONS (3)
  - Drug specific antibody present [Unknown]
  - Neutralising antibodies positive [Unknown]
  - Globotriaosylceramide increased [Unknown]

NARRATIVE: CASE EVENT DATE: 20250603
